FAERS Safety Report 10874337 (Version 2)
Quarter: 2015Q1

REPORT INFORMATION
  Report Type: Spontaneous
  Country: US (occurrence: None)
  Receive Date: 20150224
  Receipt Date: 20150324
  Transmission Date: 20150721
  Serious: Yes (Hospitalization, Other)
  Sender: FDA-Public Use
  Company Number: 2015ST000028

PATIENT
  Age: 68 Year
  Sex: Male
  Weight: 88.5 kg

DRUGS (11)
  1. STRIBILD [Suspect]
     Active Substance: COBICISTAT\ELVITEGRAVIR\EMTRICITABINE\TENOFOVIR DISOPROXIL FUMARATE
     Indication: HIV INFECTION
     Dosage: 1 DF
     Route: 048
     Dates: start: 20130722
  2. TOPROL (METOPROLOL SUCCINATE) [Concomitant]
  3. TYLENOL EXTRA STRENGTH (PARACETAMOL) [Concomitant]
  4. LISINOPRIL (LISINOPRIL) [Concomitant]
     Active Substance: LISINOPRIL
  5. CRESTOR [Concomitant]
     Active Substance: ROSUVASTATIN CALCIUM
  6. PROPECIA (FINASTERIDE) [Concomitant]
  7. GEMFIBROZIL (GEMFIBROZIL) [Concomitant]
     Active Substance: GEMFIBROZIL
  8. NEXIUM [Concomitant]
     Active Substance: ESOMEPRAZOLE MAGNESIUM
  9. ECOTRIN [Concomitant]
     Active Substance: ASPIRIN
  10. UCERIS [Suspect]
     Active Substance: BUDESONIDE
     Route: 048
  11. PROTOPIC [Suspect]
     Active Substance: TACROLIMUS

REACTIONS (4)
  - Non-cardiogenic pulmonary oedema [None]
  - Cardiac failure congestive [None]
  - Dyspnoea [None]
  - Pneumonia [None]

NARRATIVE: CASE EVENT DATE: 20150126
